FAERS Safety Report 21685842 (Version 1)
Quarter: 2022Q4

REPORT INFORMATION
  Report Type: Spontaneous
  Country: CH (occurrence: CH)
  Receive Date: 20221206
  Receipt Date: 20221206
  Transmission Date: 20230112
  Serious: Yes (Life-Threatening, Other)
  Sender: FDA-Public Use
  Company Number: CH-SM-2022-19435

PATIENT
  Age: 50 Year
  Sex: Male

DRUGS (5)
  1. LEMTRADA [Suspect]
     Active Substance: ALEMTUZUMAB
     Indication: Multiple sclerosis
     Dosage: 1 DF, CONT
     Route: 042
     Dates: start: 20160901, end: 20170901
  2. ESOMEPRAZOLE [Concomitant]
     Active Substance: ESOMEPRAZOLE
     Dosage: 20 MG, QD
     Route: 048
  3. TIROSINT [Concomitant]
     Active Substance: LEVOTHYROXINE SODIUM
     Dosage: 150 UG, QD
     Route: 048
  4. VENLAFAXINE HYDROCHLORIDE [Concomitant]
     Active Substance: VENLAFAXINE HYDROCHLORIDE
     Dosage: 75 MG, BID
     Route: 048
  5. METOPROLOL SUCCINATE [Concomitant]
     Active Substance: METOPROLOL SUCCINATE
     Dosage: 25 MG, BID
     Route: 048

REACTIONS (1)
  - Extranodal marginal zone B-cell lymphoma (MALT type) [Not Recovered/Not Resolved]

NARRATIVE: CASE EVENT DATE: 20200101
